FAERS Safety Report 7913504-1 (Version None)
Quarter: 2011Q4

REPORT INFORMATION
  Report Type: 
  Country: None (occurrence: None)
  Receive Date: 20111110
  Receipt Date: 20110930
  Transmission Date: 20120403
  Serious: Yes (Other)
  Sender: FDA-Public Use
  Company Number: 2011SP052172

PATIENT
  Sex: Male

DRUGS (1)
  1. PEGATRON (PEGYLATED INTERFERON ALFA-2B W/RIBAVIRIN) [Suspect]

REACTIONS (4)
  - DEPRESSION [None]
  - LYMPHADENOPATHY [None]
  - WHITE BLOOD CELL COUNT ABNORMAL [None]
  - WEIGHT DECREASED [None]
